FAERS Safety Report 7994533-9 (Version None)
Quarter: 2011Q4

REPORT INFORMATION
  Report Type: 
  Country: None (occurrence: None)
  Receive Date: 20111220
  Receipt Date: 20111212
  Transmission Date: 20120403
  Serious: Yes (Other)
  Sender: FDA-Public Use
  Company Number: FR-SANOFI-AVENTIS-2011SA081113

PATIENT
  Age: 76 Year
  Sex: Female

DRUGS (6)
  1. FLUOROURACIL [Concomitant]
     Route: 041
     Dates: start: 20110209, end: 20110209
  2. LEVOLEUCOVORIN CALCIUM [Concomitant]
     Route: 041
     Dates: start: 20110209, end: 20110209
  3. LEVOLEUCOVORIN CALCIUM [Concomitant]
     Indication: COLON CANCER
     Route: 041
     Dates: start: 20110103, end: 20110103
  4. ELOXATIN [Suspect]
     Indication: COLON CANCER
     Route: 041
     Dates: start: 20110103, end: 20110103
  5. ELOXATIN [Suspect]
     Route: 041
     Dates: start: 20110209, end: 20110209
  6. FLUOROURACIL [Concomitant]
     Indication: COLON CANCER
     Route: 041
     Dates: start: 20110103, end: 20110103

REACTIONS (1)
  - MULTIFOCAL MOTOR NEUROPATHY [None]
